FAERS Safety Report 16960171 (Version 1)
Quarter: 2019Q4

REPORT INFORMATION
  Report Type: Spontaneous
  Country: DK (occurrence: DK)
  Receive Date: 20191025
  Receipt Date: 20191025
  Transmission Date: 20200122
  Serious: Yes (Hospitalization)
  Sender: FDA-Public Use
  Company Number: DK-ROCHE-2445377

PATIENT
  Age: 55 Year
  Sex: Male

DRUGS (1)
  1. AVASTIN [Suspect]
     Active Substance: BEVACIZUMAB
     Indication: PITUITARY TUMOUR BENIGN
     Dosage: STRENGTH: 25MG / ML DOSAGE: UNKNOWN
     Route: 042
     Dates: start: 201801

REACTIONS (10)
  - Herpes simplex [Unknown]
  - Dizziness [Unknown]
  - Pyrexia [Unknown]
  - Headache [Unknown]
  - Herpes simplex encephalitis [Unknown]
  - Fatigue [Unknown]
  - Nausea [Unknown]
  - General physical health deterioration [Unknown]
  - Decreased immune responsiveness [Unknown]
  - Rash vesicular [Unknown]

NARRATIVE: CASE EVENT DATE: 201801
